FAERS Safety Report 26138078 (Version 1)
Quarter: 2025Q4

REPORT INFORMATION
  Report Type: Spontaneous
  Country: US (occurrence: US)
  Receive Date: 20251210
  Receipt Date: 20251210
  Transmission Date: 20260118
  Serious: No
  Sender: SANOFI AVENTIS
  Company Number: US-SA-2025SA367422

PATIENT
  Sex: Male
  Weight: 190.91 kg

DRUGS (1)
  1. DUPIXENT [Suspect]
     Active Substance: DUPILUMAB
     Dosage: 300MG QOW
     Route: 058

REACTIONS (6)
  - Feeling abnormal [Unknown]
  - Product dose omission issue [Unknown]
  - Dyspnoea [Unknown]
  - Productive cough [Unknown]
  - Rhinorrhoea [Unknown]
  - Chest discomfort [Unknown]
